FAERS Safety Report 6522762-X (Version None)
Quarter: 2009Q4

REPORT INFORMATION
  Report Type: 
  Country: None (occurrence: None)
  Receive Date: 20091222
  Receipt Date: 20091211
  Transmission Date: 20100525
  Serious: Yes (Other)
  Sender: FDA-Public Use
  Company Number: 230176J09CAN

PATIENT
  Age: 66 Year
  Sex: Female

DRUGS (1)
  1. REBIF [Suspect]
     Indication: MULTIPLE SCLEROSIS
     Dosage: 22 MCG, 3 IN 1 WEEKS
     Dates: start: 20020521

REACTIONS (4)
  - EYELID PTOSIS [None]
  - INCREASED UPPER AIRWAY SECRETION [None]
  - PURULENCE [None]
  - VISUAL IMPAIRMENT [None]
